FAERS Safety Report 8365227-5 (Version None)
Quarter: 2012Q2

REPORT INFORMATION
  Report Type: 
  Country: None (occurrence: None)
  Receive Date: 20120516
  Receipt Date: 20120419
  Transmission Date: 20120825
  Serious: Yes (Death, Hospitalization, Other)
  Sender: FDA-Public Use
  Company Number: US-BAXTER-2012BAX002988

PATIENT
  Sex: Female

DRUGS (4)
  1. DIANEAL LOW CALCIUM W/ DEXTROSE 1.5% [Suspect]
     Route: 033
     Dates: end: 20120411
  2. DIANEAL [Suspect]
     Route: 033
     Dates: end: 20120411
  3. DIANEAL [Suspect]
     Route: 033
     Dates: end: 20120411
  4. DIANEAL [Suspect]
     Route: 033
     Dates: end: 20120411

REACTIONS (4)
  - LOCAL SWELLING [None]
  - THERAPY CESSATION [None]
  - POOR PERIPHERAL CIRCULATION [None]
  - TERMINAL STATE [None]
